FAERS Safety Report 15939476 (Version 3)
Quarter: 2020Q1

REPORT INFORMATION
  Report Type: Report from Study
  Country: FR (occurrence: FR)
  Receive Date: 20190208
  Receipt Date: 20200106
  Transmission Date: 20200409
  Serious: Yes (Other)
  Sender: FDA-Public Use
  Company Number: FR-SA-2019SA032950

PATIENT
  Age: 2 Month
  Sex: Male
  Weight: 5 kg

DRUGS (15)
  1. METHYLPREDNISOLONE. [Concomitant]
     Active Substance: METHYLPREDNISOLONE
     Indication: PREMEDICATION
     Dosage: 1 MG/KG, QD
     Route: 042
     Dates: start: 20190111, end: 20190113
  2. CICLOSPORIN [Concomitant]
     Active Substance: CYCLOSPORINE
     Dosage: UNK
     Route: 042
     Dates: start: 20190611
  3. ALEMTUZUMAB [Suspect]
     Active Substance: ALEMTUZUMAB
     Dosage: 5.7 MG
     Route: 041
     Dates: start: 20190112, end: 20190112
  4. PARACETAMOL [Concomitant]
     Active Substance: ACETAMINOPHEN
     Indication: PREMEDICATION
     Dosage: 40 MG/D, QD
     Route: 042
     Dates: start: 20190111, end: 20190113
  5. AMLOR [Concomitant]
     Active Substance: AMLODIPINE BESYLATE
     Indication: PROPHYLAXIS
     Dosage: UNK
     Route: 048
     Dates: start: 20190114
  6. CICLOSPORIN [Concomitant]
     Active Substance: CYCLOSPORINE
     Indication: PREMEDICATION
     Dosage: 5 MG/D, QD
     Route: 042
     Dates: start: 20190110
  7. BACTRIM [Concomitant]
     Active Substance: SULFAMETHOXAZOLE\TRIMETHOPRIM
     Indication: PROPHYLAXIS
     Dosage: 140 MG, TID,PER OS
     Route: 048
     Dates: start: 20190113
  8. CASPOFUNGINE [Concomitant]
     Active Substance: CASPOFUNGIN
     Indication: PROPHYLAXIS
     Dosage: 7.5 MG, UNK
     Route: 042
     Dates: start: 20190112
  9. CICLOSPORIN [Concomitant]
     Active Substance: CYCLOSPORINE
     Indication: PROPHYLAXIS
     Dosage: 1.5 MG
     Route: 042
     Dates: start: 20190114
  10. POLARAMINE [Concomitant]
     Active Substance: DEXCHLORPHENIRAMINE MALEATE
     Dosage: 2.5 MG, QD
     Route: 042
     Dates: start: 20190111, end: 20190113
  11. ALEMTUZUMAB [Suspect]
     Active Substance: ALEMTUZUMAB
     Indication: HAEMOPHAGOCYTIC LYMPHOHISTIOCYTOSIS
     Dosage: 3 MG
     Route: 041
     Dates: start: 20190111, end: 20190111
  12. SOLU-MEDROL [Concomitant]
     Active Substance: METHYLPREDNISOLONE SODIUM SUCCINATE
     Indication: PROPHYLAXIS
     Dosage: 6 MG
     Route: 042
     Dates: start: 20190114
  13. ALEMTUZUMAB [Suspect]
     Active Substance: ALEMTUZUMAB
     Dosage: 2.7 MG
     Route: 041
     Dates: start: 20190125, end: 20190125
  14. DEXCHLORPHENIRAMINE [Concomitant]
     Active Substance: DEXCHLORPHENIRAMINE
     Indication: PREMEDICATION
     Dosage: 2.5/D
     Route: 042
     Dates: start: 20190111, end: 20190113
  15. CASPOFUNGINE [Concomitant]
     Active Substance: CASPOFUNGIN
     Dosage: 7.5 MG
     Route: 042
     Dates: start: 20190114

REACTIONS (1)
  - Cytomegalovirus infection [Recovered/Resolved]

NARRATIVE: CASE EVENT DATE: 20190121
